FAERS Safety Report 24873239 (Version 2)
Quarter: 2025Q1

REPORT INFORMATION
  Report Type: Spontaneous
  Country: RU (occurrence: RU)
  Receive Date: 20250122
  Receipt Date: 20250131
  Transmission Date: 20250409
  Serious: Yes (Other)
  Sender: ASTELLAS
  Company Number: RU-GILEAD-2025-0699507

PATIENT
  Age: 16 Year
  Sex: Female
  Weight: 45 kg

DRUGS (8)
  1. AMBISOME [Suspect]
     Active Substance: AMPHOTERICIN B
     Indication: Pulmonary mucormycosis
     Dosage: 5 MG/KG/DAY
     Route: 042
     Dates: start: 20241120, end: 20241226
  2. ISAVUCONAZONIUM SULFATE [Concomitant]
     Active Substance: ISAVUCONAZONIUM SULFATE
     Indication: Pulmonary mucormycosis
     Route: 042
     Dates: start: 20241120
  3. CIPROFLOXACIN [Concomitant]
     Active Substance: CIPROFLOXACIN
     Indication: Pneumonia bacterial
     Dosage: 500 MG, BID
     Route: 048
     Dates: start: 20241209, end: 20241223
  4. AMIKACIN [Concomitant]
     Active Substance: AMIKACIN
     Indication: Pneumonia bacterial
     Route: 042
     Dates: start: 20241209, end: 20241219
  5. AMIKACIN [Concomitant]
     Active Substance: AMIKACIN
     Route: 042
     Dates: start: 20241209, end: 20241219
  6. DALTEPARIN SODIUM [Concomitant]
     Active Substance: DALTEPARIN SODIUM
     Indication: Venous thrombosis
     Route: 058
     Dates: start: 20241206
  7. INSULIN DEGLUDEC [Concomitant]
     Active Substance: INSULIN DEGLUDEC
     Indication: Type 1 diabetes mellitus
     Dosage: 10 IU, QD
     Route: 058
  8. INSULIN ASPART [Concomitant]
     Active Substance: INSULIN ASPART
     Indication: Product used for unknown indication
     Route: 058

REACTIONS (5)
  - Pyrexia [Recovering/Resolving]
  - Hypokalaemia [Not Recovered/Not Resolved]
  - Partial seizures [Recovered/Resolved]
  - Arrhythmia [Unknown]
  - Nausea [Recovered/Resolved]

NARRATIVE: CASE EVENT DATE: 20241120
